FAERS Safety Report 17565700 (Version 1)
Quarter: 2020Q1

REPORT INFORMATION
  Report Type: Spontaneous
  Country: US (occurrence: US)
  Receive Date: 20200315
  Receipt Date: 20200315
  Transmission Date: 20200409
  Serious: No
  Sender: FDA-Public Use
  Company Number: None

PATIENT
  Sex: Female

DRUGS (1)
  1. HUMIRA [Suspect]
     Active Substance: ADALIMUMAB
     Indication: SPINAL OSTEOARTHRITIS
     Dosage: ?          DOSSAGE/OTHER FREQUENCY:ONE 40 MG PEN EVERY 10 DAYS ?
     Route: 058
     Dates: start: 20180515

REACTIONS (2)
  - Pruritus [None]
  - Rash [None]
